FAERS Safety Report 21527456 (Version 1)
Quarter: 2022Q4

REPORT INFORMATION
  Report Type: Spontaneous
  Country: CN (occurrence: None)
  Receive Date: 20221031
  Receipt Date: 20221031
  Transmission Date: 20230113
  Serious: Yes (Other)
  Sender: FDA-Public Use
  Company Number: CN-ROCHE-3209142

PATIENT
  Age: 55 Year
  Sex: Male
  Weight: 73 kg

DRUGS (3)
  1. CELLCEPT [Suspect]
     Active Substance: MYCOPHENOLATE MOFETIL
     Indication: Therapeutic procedure
     Route: 048
     Dates: start: 20220918, end: 20221008
  2. ISONIAZID [Suspect]
     Active Substance: ISONIAZID
     Indication: Therapeutic procedure
     Route: 048
     Dates: start: 20220918, end: 20221014
  3. METHIMAZOLE [Concomitant]
     Active Substance: METHIMAZOLE
     Indication: Symptomatic treatment
     Route: 048
     Dates: start: 20220601, end: 20221014

REACTIONS (3)
  - Neutrophil count decreased [Not Recovered/Not Resolved]
  - Haemoglobin decreased [Not Recovered/Not Resolved]
  - White blood cell count decreased [Not Recovered/Not Resolved]

NARRATIVE: CASE EVENT DATE: 20221007
